FAERS Safety Report 7973075 (Version 5)
Quarter: 2016Q4

REPORT INFORMATION
  Report Type: Report from Study
  Country: US (occurrence: US)
  Receive Date: 20110603
  Receipt Date: 20161205
  Transmission Date: 20170207
  Serious: Yes (Death, Hospitalization, Other)
  Sender: FDA-Public Use
  Company Number: US-ASTELLAS-2011US002564

PATIENT
  Age: 65 Year
  Sex: Female

DRUGS (2)
  1. ERLOTINIB [Suspect]
     Active Substance: ERLOTINIB
     Indication: NON-SMALL CELL LUNG CANCER
     Route: 048
     Dates: start: 20100701, end: 20110213
  2. FASLODEX [Suspect]
     Active Substance: FULVESTRANT
     Indication: NON-SMALL CELL LUNG CANCER
     Route: 030
     Dates: start: 20100213, end: 20110213

REACTIONS (3)
  - Coma [Fatal]
  - Pneumonia [Fatal]
  - Cardiac arrest [Fatal]

NARRATIVE: CASE EVENT DATE: 20110213
